FAERS Safety Report 9632947 (Version 3)
Quarter: 2013Q4

REPORT INFORMATION
  Report Type: Report from Study
  Country: US (occurrence: US)
  Receive Date: 20131018
  Receipt Date: 20131022
  Transmission Date: 20140711
  Serious: Yes (Other)
  Sender: FDA-Public Use
  Company Number: US-ABBVIE-13P-163-1154935-00

PATIENT
  Age: 46 Year
  Sex: Female
  Weight: 148 kg

DRUGS (17)
  1. HUMIRA [Suspect]
     Indication: HIDRADENITIS
     Dates: start: 201305, end: 201307
  2. HUMIRA [Suspect]
     Route: 058
     Dates: start: 201309
  3. AMITRIPTYLINE [Concomitant]
     Indication: PRODUCT USED FOR UNKNOWN INDICATION
  4. ASPIRIN [Concomitant]
     Indication: PRODUCT USED FOR UNKNOWN INDICATION
  5. ZYRTEC [Concomitant]
     Indication: PRODUCT USED FOR UNKNOWN INDICATION
  6. FLEXERIL [Concomitant]
     Indication: PRODUCT USED FOR UNKNOWN INDICATION
  7. FLONASE [Concomitant]
     Indication: PRODUCT USED FOR UNKNOWN INDICATION
  8. NEURONTIN [Concomitant]
     Indication: NEUROPATHY PERIPHERAL
  9. LASIX [Concomitant]
     Indication: PRODUCT USED FOR UNKNOWN INDICATION
  10. VICODIN [Concomitant]
     Indication: PRODUCT USED FOR UNKNOWN INDICATION
  11. INSULIN [Concomitant]
     Indication: TYPE 1 DIABETES MELLITUS
  12. NOVOLOG [Concomitant]
     Indication: TYPE 1 DIABETES MELLITUS
  13. LISINOPRIL [Concomitant]
     Indication: HYPERTENSION
  14. LISPRO INSULIN [Concomitant]
     Indication: TYPE 1 DIABETES MELLITUS
  15. OMEPRAZOLE [Concomitant]
     Indication: GASTROOESOPHAGEAL REFLUX DISEASE
  16. ONDANSETRON [Concomitant]
     Indication: PRODUCT USED FOR UNKNOWN INDICATION
  17. PHENERGAN [Concomitant]
     Indication: PRODUCT USED FOR UNKNOWN INDICATION

REACTIONS (8)
  - Ovarian cyst [Recovered/Resolved]
  - Abscess [Recovered/Resolved]
  - Staphylococcal infection [Unknown]
  - Inflammation [Unknown]
  - Pyrexia [Recovered/Resolved]
  - Peptostreptococcus infection [Recovered/Resolved]
  - Impaired healing [Recovered/Resolved]
  - Post procedural infection [Recovered/Resolved]
